FAERS Safety Report 4892471-1 (Version None)
Quarter: 2006Q1

REPORT INFORMATION
  Report Type: 
  Country: None (occurrence: None)
  Receive Date: 20060126
  Receipt Date: 20050818
  Transmission Date: 20060701
  Serious: No
  Sender: FDA-Public Use
  Company Number: US-BRISTOL-MYERS SQUIBB COMPANY-13083035

PATIENT
  Age: 28 Year
  Sex: Female
  Weight: 75 kg

DRUGS (9)
  1. CEFZIL [Suspect]
     Indication: BRONCHITIS
     Dates: start: 20050808, end: 20050814
  2. LANTUS [Concomitant]
  3. HUMALOG [Concomitant]
  4. SYNTHROID [Concomitant]
  5. PRILOSEC [Concomitant]
  6. LAXATIVES [Concomitant]
  7. CALCIUM GLUCONATE [Concomitant]
  8. MULTI-VITAMIN [Concomitant]
  9. ANTACID TAB [Concomitant]

REACTIONS (4)
  - BLADDER PAIN [None]
  - DIARRHOEA [None]
  - DYSPEPSIA [None]
  - NAUSEA [None]
